FAERS Safety Report 20205145 (Version 1)
Quarter: 2021Q4

REPORT INFORMATION
  Report Type: Spontaneous
  Country: US (occurrence: None)
  Receive Date: 20211220
  Receipt Date: 20211220
  Transmission Date: 20220303
  Serious: No
  Sender: FDA-Public Use
  Company Number: US-MDD US Operations-SUP202107-001391

PATIENT
  Age: 29 Year
  Sex: Male

DRUGS (6)
  1. OXTELLAR XR [Suspect]
     Active Substance: OXCARBAZEPINE
     Indication: Partial seizures
     Dates: start: 201501
  2. OXTELLAR XR [Suspect]
     Active Substance: OXCARBAZEPINE
     Dosage: NOT PROVIDED
     Dates: start: 20210527
  3. OXTELLAR XR [Suspect]
     Active Substance: OXCARBAZEPINE
     Dosage: NOT PROVIDED
     Dates: start: 20210527
  4. GABAPENTIN [Concomitant]
     Active Substance: GABAPENTIN
  5. LAMOTRIGINE [Concomitant]
     Active Substance: LAMOTRIGINE
     Indication: Affective disorder
  6. Recreational marijuana [Concomitant]
     Dosage: NOT PROVIDED

REACTIONS (4)
  - Generalised tonic-clonic seizure [Recovered/Resolved]
  - Product dose omission issue [Unknown]
  - Extra dose administered [Unknown]
  - Drug ineffective [Unknown]
